FAERS Safety Report 6633133-X (Version None)
Quarter: 2010Q1

REPORT INFORMATION
  Report Type: 
  Country: None (occurrence: None)
  Receive Date: 20100312
  Receipt Date: 20100302
  Transmission Date: 20100710
  Serious: Yes (Other)
  Sender: FDA-Public Use
  Company Number: PHHY2009FR56967

PATIENT
  Sex: Male
  Weight: 81 kg

DRUGS (3)
  1. VOLTAREN [Suspect]
     Indication: BACK PAIN
     Dosage: 75 MG, BID
     Route: 048
     Dates: start: 20091214, end: 20091220
  2. ACETAMINOPHEN WITH PROPOXYPHENE HCL TAB [Concomitant]
     Dosage: 2 DF, TID
     Dates: start: 20061215, end: 20091216
  3. MYOLASTAN [Concomitant]
     Dosage: 50 MG, QD
     Dates: start: 20091214, end: 20091220

REACTIONS (6)
  - DIZZINESS [None]
  - FATIGUE [None]
  - HEADACHE [None]
  - LOSS OF CONSCIOUSNESS [None]
  - NAUSEA [None]
  - VISUAL IMPAIRMENT [None]
